FAERS Safety Report 18556426 (Version 1)
Quarter: 2020Q4

REPORT INFORMATION
  Report Type: Report from Study
  Country: US (occurrence: US)
  Receive Date: 20201128
  Receipt Date: 20201128
  Transmission Date: 20210114
  Serious: No
  Sender: FDA-Public Use
  Company Number: NVSC2020US313832

PATIENT
  Age: 39 Year
  Sex: Male

DRUGS (1)
  1. ARZERRA [Suspect]
     Active Substance: OFATUMUMAB
     Indication: NEPHROTIC SYNDROME
     Dosage: 2000 MG, QW
     Route: 042

REACTIONS (1)
  - Product use issue [Unknown]
